FAERS Safety Report 22008671 (Version 1)
Quarter: 2023Q1

REPORT INFORMATION
  Report Type: Spontaneous
  Country: US (occurrence: US)
  Receive Date: 20230219
  Receipt Date: 20230219
  Transmission Date: 20230417
  Serious: Yes (Other)
  Sender: FDA-Public Use
  Company Number: US-009507513-2302USA004964

PATIENT
  Age: 75 Year
  Sex: Female

DRUGS (2)
  1. KEYTRUDA [Suspect]
     Active Substance: PEMBROLIZUMAB
     Indication: Lung neoplasm malignant
  2. ALIMTA [Suspect]
     Active Substance: PEMETREXED DISODIUM
     Indication: Lung neoplasm malignant

REACTIONS (6)
  - Uveitis [Unknown]
  - Periorbital swelling [Unknown]
  - Lacrimation increased [Unknown]
  - Blood thyroid stimulating hormone abnormal [Unknown]
  - Lip swelling [Unknown]
  - Rash [Unknown]
